FAERS Safety Report 17241369 (Version 1)
Quarter: 2020Q1

REPORT INFORMATION
  Report Type: Spontaneous
  Country: US (occurrence: US)
  Receive Date: 20200103
  Receipt Date: 20200103
  Transmission Date: 20200409
  Serious: No
  Sender: FDA-Public Use
  Company Number: None

PATIENT
  Sex: Female

DRUGS (1)
  1. U-DREAM HERBAL SUPPLEMENT [Suspect]
     Active Substance: HERBALS
     Dosage: ?          QUANTITY:1 CAPSULE(S);?
     Route: 048
     Dates: start: 20191218, end: 20191230

REACTIONS (3)
  - Suspected product quality issue [None]
  - Insomnia [None]
  - Withdrawal syndrome [None]

NARRATIVE: CASE EVENT DATE: 20200102
